FAERS Safety Report 21151000 (Version 2)
Quarter: 2022Q3

REPORT INFORMATION
  Report Type: Report from Study
  Country: US (occurrence: US)
  Receive Date: 20220729
  Receipt Date: 20220902
  Transmission Date: 20221027
  Serious: Yes (Other)
  Sender: FDA-Public Use
  Company Number: US-ABBVIE-22K-163-4447603-00

PATIENT
  Age: 75 Year
  Sex: Female

DRUGS (6)
  1. HUMIRA [Suspect]
     Active Substance: ADALIMUMAB
     Indication: Rheumatoid arthritis
     Route: 058
  2. PFIZER-BIONTECH COVID-19 VACCINE [Concomitant]
     Active Substance: TOZINAMERAN
     Indication: COVID-19 immunisation
     Dosage: FIRST DOSE
     Route: 030
     Dates: start: 20210401, end: 20210401
  3. PFIZER-BIONTECH COVID-19 VACCINE [Concomitant]
     Active Substance: TOZINAMERAN
     Dosage: SECOND DOSE
     Route: 030
     Dates: start: 20210601, end: 20210601
  4. PFIZER-BIONTECH COVID-19 VACCINE [Concomitant]
     Active Substance: TOZINAMERAN
     Dosage: THIRD DOSE
     Route: 030
     Dates: start: 20220501, end: 20220501
  5. MODERNA COVID-19 VACCINE [Concomitant]
     Active Substance: ELASOMERAN
     Indication: COVID-19 immunisation
     Dosage: 1ST BOOSTER VACCINE
     Route: 030
     Dates: start: 20211109, end: 20211109
  6. MODERNA COVID-19 VACCINE [Concomitant]
     Active Substance: ELASOMERAN
     Dosage: 2ND BOOSTER VACCINE
     Route: 030
     Dates: start: 20220511, end: 20220511

REACTIONS (10)
  - Haemorrhage [Unknown]
  - Post procedural complication [Recovering/Resolving]
  - Anaemia [Recovering/Resolving]
  - Polyp [Unknown]
  - Malignant melanoma [Recovering/Resolving]
  - Skin cancer [Recovering/Resolving]
  - Haemoglobin abnormal [Unknown]
  - Fatigue [Unknown]
  - Decreased appetite [Unknown]
  - Device issue [Unknown]

NARRATIVE: CASE EVENT DATE: 20220622
